FAERS Safety Report 6538717-5 (Version None)
Quarter: 2010Q1

REPORT INFORMATION
  Report Type: 
  Country: None (occurrence: None)
  Receive Date: 20100113
  Receipt Date: 20100113
  Transmission Date: 20100710
  Serious: Yes (Hospitalization)
  Sender: FDA-Public Use
  Company Number: None

PATIENT
  Age: 59 Year
  Sex: Female
  Weight: 61.6892 kg

DRUGS (8)
  1. BEVACIZUMAB [Suspect]
     Indication: COLORECTAL CANCER
     Dosage: 469.5MG
     Dates: start: 20090126
  2. IRINOTECAN HCL [Suspect]
     Indication: COLORECTAL CANCER
     Dosage: 147MG
     Dates: start: 20090126
  3. FLOXURIDINE [Suspect]
     Dosage: 6169MG
  4. SYNTHROID [Concomitant]
  5. PROTONIX [Concomitant]
  6. LEXAPRO [Concomitant]
  7. COUMADIN [Concomitant]
  8. PERCOCET [Concomitant]

REACTIONS (2)
  - CHOLECYSTITIS INFECTIVE [None]
  - CHOLELITHIASIS [None]
